FAERS Safety Report 23475674 (Version 1)
Quarter: 2024Q1

REPORT INFORMATION
  Report Type: Spontaneous
  Country: BR (occurrence: BR)
  Receive Date: 20240204
  Receipt Date: 20240204
  Transmission Date: 20240410
  Serious: No
  Sender: FDA-Public Use
  Company Number: BR-EXELIXIS-CABO-23060330

PATIENT
  Age: 72 Year
  Sex: Male

DRUGS (1)
  1. CABOMETYX [Suspect]
     Active Substance: CABOZANTINIB S-MALATE
     Indication: Chronic kidney disease
     Dosage: 60 MG, QOD

REACTIONS (3)
  - Blood creatinine increased [Unknown]
  - Inappropriate schedule of product administration [Unknown]
  - Off label use [Unknown]
